FAERS Safety Report 9505152 (Version 2)
Quarter: 2013Q3

REPORT INFORMATION
  Report Type: Spontaneous
  Country: CA (occurrence: CA)
  Receive Date: 20130906
  Receipt Date: 20130906
  Transmission Date: 20140515
  Serious: Yes (Other)
  Sender: FDA-Public Use
  Company Number: CA-ASTRAZENECA-2013SE63816

PATIENT
  Age: 63 Year
  Sex: Female

DRUGS (5)
  1. CRESTOR [Suspect]
     Route: 048
     Dates: start: 2008
  2. CRESTOR [Suspect]
     Route: 048
  3. ATACAND [Suspect]
     Route: 065
     Dates: start: 2005
  4. ATACAND [Suspect]
     Dosage: GENERIC BY SANDOZ
     Route: 065
     Dates: start: 201306, end: 20130804
  5. ATACAND [Suspect]
     Route: 065

REACTIONS (4)
  - Chest pain [Recovered/Resolved]
  - Blood pressure increased [Recovered/Resolved]
  - Pain [Recovered/Resolved]
  - Pain in extremity [Recovered/Resolved]
